FAERS Safety Report 8017506-9 (Version None)
Quarter: 2011Q4

REPORT INFORMATION
  Report Type: 
  Country: None (occurrence: None)
  Receive Date: 20111228
  Receipt Date: 20111228
  Transmission Date: 20120403
  Serious: Yes (Other)
  Sender: FDA-Public Use
  Company Number: None

PATIENT
  Age: 85 Year
  Sex: Male
  Weight: 87.9978 kg

DRUGS (1)
  1. SPIRIVA [Suspect]
     Indication: LUNG DISORDER
     Dosage: ONCE DAILY MOUTH
     Route: 048

REACTIONS (4)
  - DYSPNOEA [None]
  - CHEST DISCOMFORT [None]
  - DRY MOUTH [None]
  - SINUS DISORDER [None]
